FAERS Safety Report 6697542-5 (Version None)
Quarter: 2010Q2

REPORT INFORMATION
  Report Type: 
  Country: None (occurrence: None)
  Receive Date: 20100421
  Receipt Date: 20090522
  Transmission Date: 20101027
  Serious: Yes (Other)
  Sender: FDA-Public Use
  Company Number: 20090214

PATIENT
  Age: 35 Year
  Sex: Female

DRUGS (1)
  1. DEXFERRUM [Suspect]
     Indication: IRON DEFICIENCY ANAEMIA
     Dosage: 100 MG WEEKLY, INTRAVENOUS
     Route: 042
     Dates: end: 20090513

REACTIONS (3)
  - BACK PAIN [None]
  - CHEST PAIN [None]
  - DYSPNOEA [None]
